FAERS Safety Report 13677082 (Version 5)
Quarter: 2017Q4

REPORT INFORMATION
  Report Type: Spontaneous
  Country: AU (occurrence: AU)
  Receive Date: 20170622
  Receipt Date: 20171116
  Transmission Date: 20180320
  Serious: Yes (Other)
  Sender: FDA-Public Use
  Company Number: AU-SUN PHARMACEUTICAL INDUSTRIES LTD-2017R1-142807

PATIENT
  Age: 59 Year
  Sex: Male

DRUGS (8)
  1. VENLAFAXINE [Suspect]
     Active Substance: VENLAFAXINE HYDROCHLORIDE
     Indication: SUICIDAL IDEATION
     Dosage: UNK
     Route: 048
  2. MIRTAZAPINE. [Suspect]
     Active Substance: MIRTAZAPINE
     Indication: SUICIDAL IDEATION
     Dosage: 15 MG, QD
     Route: 048
  3. PRAMIPEXOLE. [Suspect]
     Active Substance: PRAMIPEXOLE
     Indication: SUICIDAL IDEATION
     Dosage: UNK
     Route: 048
  4. PRAMIPEXOLE. [Suspect]
     Active Substance: PRAMIPEXOLE
     Indication: RESTLESS LEGS SYNDROME
     Dosage: 0.125 MG, DAILY
     Route: 048
  5. VENLAFAXINE [Suspect]
     Active Substance: VENLAFAXINE HYDROCHLORIDE
     Indication: SUICIDAL IDEATION
     Dosage: 150 MG, QD (SLOW RELEASE)
     Route: 048
  6. MIRTAZAPINE. [Suspect]
     Active Substance: MIRTAZAPINE
     Indication: SUICIDAL IDEATION
     Dosage: UNK
     Route: 048
  7. FLUDROCORTISONE [Concomitant]
     Active Substance: FLUDROCORTISONE
     Indication: ORTHOSTATIC HYPOTENSION
     Dosage: UNK
     Route: 065
  8. VENLAFAXINE [Suspect]
     Active Substance: VENLAFAXINE HYDROCHLORIDE
     Dosage: SLOW-RELEASE
     Route: 048

REACTIONS (17)
  - Heart rate increased [Recovering/Resolving]
  - Blood lactic acid increased [Recovering/Resolving]
  - Overdose [Unknown]
  - Toxicity to various agents [Unknown]
  - Urinary retention [Recovered/Resolved]
  - Suicide attempt [Unknown]
  - Dizziness [Recovering/Resolving]
  - Feeling jittery [Recovering/Resolving]
  - Hypervigilance [Recovering/Resolving]
  - Ataxia [Recovering/Resolving]
  - Speech disorder [Recovering/Resolving]
  - Agitation [Recovered/Resolved]
  - Myoclonus [Recovering/Resolving]
  - Dysuria [Recovered/Resolved]
  - Hallucination, visual [Recovered/Resolved]
  - Dysarthria [Unknown]
  - Disturbance in attention [Recovering/Resolving]
